FAERS Safety Report 18433724 (Version 4)
Quarter: 2021Q1

REPORT INFORMATION
  Report Type: Spontaneous
  Country: US (occurrence: US)
  Receive Date: 20201027
  Receipt Date: 20210111
  Transmission Date: 20210419
  Serious: Yes (Other)
  Sender: FDA-Public Use
  Company Number: US-009507513-2010USA008863

PATIENT
  Sex: Female

DRUGS (2)
  1. NEXPLANON [Suspect]
     Active Substance: ETONOGESTREL
     Dosage: 1 DOSAGE FORM (APPROXIMATELY 6 YEAR OLD IN LEFT ARM)
     Dates: start: 201410
  2. NEXPLANON [Suspect]
     Active Substance: ETONOGESTREL
     Dosage: 68 MG (1 IMPLANT), EVERY 3 YEARS
     Route: 059
     Dates: end: 20201022

REACTIONS (6)
  - Complication associated with device [Not Recovered/Not Resolved]
  - Complication associated with device [Recovered/Resolved]
  - Surgery [Unknown]
  - Complication of device removal [Recovered/Resolved]
  - Overdose [Unknown]
  - Incorrect product administration duration [Unknown]

NARRATIVE: CASE EVENT DATE: 201710
